FAERS Safety Report 24534354 (Version 1)
Quarter: 2024Q4

REPORT INFORMATION
  Report Type: Spontaneous
  Country: GB (occurrence: GB)
  Receive Date: 20241022
  Receipt Date: 20241022
  Transmission Date: 20250115
  Serious: Yes (Disabling, Other)
  Sender: JOHNSON AND JOHNSON
  Company Number: None

PATIENT
  Age: 27 Year

DRUGS (2)
  1. HALDOL [Suspect]
     Active Substance: HALOPERIDOL
     Indication: Product used for unknown indication
     Route: 065
  2. INVEGA [Suspect]
     Active Substance: PALIPERIDONE
     Indication: Product used for unknown indication
     Route: 065

REACTIONS (5)
  - Trismus [Recovered/Resolved]
  - Pain in jaw [Recovered/Resolved]
  - Tongue spasm [Recovered/Resolved]
  - Dyskinesia [Recovered/Resolved]
  - Complex regional pain syndrome [Recovered/Resolved]

NARRATIVE: CASE EVENT DATE: 20240907
